FAERS Safety Report 10793180 (Version 4)
Quarter: 2015Q2

REPORT INFORMATION
  Report Type: Report from Study
  Country: CA (occurrence: CA)
  Receive Date: 20150213
  Receipt Date: 20150402
  Transmission Date: 20150821
  Serious: Yes (Other)
  Sender: FDA-Public Use
  Company Number: CA-PFIZER INC-2014259614

PATIENT
  Age: 51 Year
  Sex: Female
  Weight: 70 kg

DRUGS (10)
  1. PALBOCICLIB [Suspect]
     Active Substance: PALBOCICLIB
     Indication: BREAST CANCER METASTATIC
     Dosage: 125 MG, 1X/DAY, FOR 21 DAYS
     Route: 048
     Dates: start: 20140811, end: 20140824
  2. PREDNISONE. [Concomitant]
     Active Substance: PREDNISONE
     Indication: PROPHYLAXIS
     Dosage: 50 MG, EVERY 6 HOURS STARTING 13 HOURS PRIOR TO SCAN
     Route: 048
     Dates: start: 2008
  3. CALCIUM [Concomitant]
     Active Substance: CALCIUM
     Indication: SUPPLEMENTATION THERAPY
     Dosage: 650 MG, 2X/DAY
     Route: 048
     Dates: start: 201207
  4. FASLODEX [Suspect]
     Active Substance: FULVESTRANT
     Indication: BREAST CANCER METASTATIC
     Dosage: 500 MG, CYCLIC (ON CYCLE 1 DAY 1 THEN CYCLE 1 DAY 15 THEN EVERY 4 WEEKS)
     Route: 030
     Dates: start: 20140811, end: 20140825
  5. DIPHENHYDRAMINE [Concomitant]
     Active Substance: DIPHENHYDRAMINE
     Indication: PROPHYLAXIS
     Dosage: 50 MG,AS NEEDED
     Route: 048
     Dates: start: 2008
  6. SENOKOT [Concomitant]
     Active Substance: SENNOSIDES
     Indication: CONSTIPATION
     Dosage: 1 TABLET, EVERY NIGHT (ONCE DAILY)
     Route: 048
     Dates: start: 20140825
  7. ZOLADEX [Concomitant]
     Active Substance: GOSERELIN ACETATE
     Indication: BREAST CANCER METASTATIC
     Dosage: 3.6 MG, CYCLIC (EVERY 28 DAYS)
     Route: 058
     Dates: start: 20140416
  8. OMEGA 3 [Concomitant]
     Active Substance: OMEGA-3 FATTY ACIDS
     Indication: SUPPLEMENTATION THERAPY
     Dosage: 1 CAPSULE, EVERY NIGHT (ONCE DAILY)
     Route: 048
     Dates: start: 201207
  9. VITAMIN D [Concomitant]
     Active Substance: CHOLECALCIFEROL
     Indication: SUPPLEMENTATION THERAPY
     Dosage: 1000 IU, 1X/DAY
     Route: 048
     Dates: start: 201207
  10. TYLENOL [Concomitant]
     Active Substance: ACETAMINOPHEN
     Indication: ARTHRALGIA
     Dosage: 325 TO 650 MG, EVERY 6 HOURS
     Route: 048
     Dates: start: 200607, end: 20140825

REACTIONS (1)
  - Alanine aminotransferase increased [Recovered/Resolved]

NARRATIVE: CASE EVENT DATE: 20140825
